FAERS Safety Report 6656592-5 (Version None)
Quarter: 2010Q1

REPORT INFORMATION
  Report Type: 
  Country: None (occurrence: None)
  Receive Date: 20100329
  Receipt Date: 20100317
  Transmission Date: 20100710
  Serious: Yes (Other)
  Sender: FDA-Public Use
  Company Number: DE-PFIZER INC-2010033651

PATIENT
  Sex: Female

DRUGS (1)
  1. ZELDOX [Suspect]
     Dosage: UNK
     Dates: start: 20080101

REACTIONS (1)
  - WAXY FLEXIBILITY [None]
